FAERS Safety Report 16830135 (Version 1)
Quarter: 2019Q3

REPORT INFORMATION
  Report Type: Report from Study
  Country: CA (occurrence: CA)
  Receive Date: 20190919
  Receipt Date: 20190919
  Transmission Date: 20191005
  Serious: Yes (Other)
  Sender: FDA-Public Use
  Company Number: CA-BEH-2019106822

PATIENT
  Sex: Male

DRUGS (8)
  1. BERINERT [Suspect]
     Active Substance: HUMAN C1-ESTERASE INHIBITOR
     Indication: HEREDITARY ANGIOEDEMA
     Dosage: 1500 INTERNATIONAL UNIT, BIW
     Route: 058
     Dates: start: 2013
  2. BERINERT [Suspect]
     Active Substance: HUMAN C1-ESTERASE INHIBITOR
     Indication: ANGIOEDEMA
  3. BERINERT [Suspect]
     Active Substance: HUMAN C1-ESTERASE INHIBITOR
     Indication: URTICARIA
     Dosage: 1500 INTERNATIONAL UNIT, PRN
     Route: 042
     Dates: start: 2013
  4. BERINERT [Suspect]
     Active Substance: HUMAN C1-ESTERASE INHIBITOR
     Indication: ANGIOEDEMA
  5. BERINERT [Suspect]
     Active Substance: HUMAN C1-ESTERASE INHIBITOR
     Indication: PROPHYLAXIS
  6. BERINERT [Suspect]
     Active Substance: HUMAN C1-ESTERASE INHIBITOR
     Indication: URTICARIA
     Dosage: 1500 INTERNATIONAL UNIT, PRN
     Route: 042
     Dates: start: 2013
  7. BERINERT [Suspect]
     Active Substance: HUMAN C1-ESTERASE INHIBITOR
     Indication: PROPHYLAXIS
  8. BERINERT [Suspect]
     Active Substance: HUMAN C1-ESTERASE INHIBITOR
     Indication: HEREDITARY ANGIOEDEMA
     Dosage: 1500 INTERNATIONAL UNIT, BIW
     Route: 058
     Dates: start: 2013

REACTIONS (7)
  - Arthralgia [Not Recovered/Not Resolved]
  - No adverse event [Unknown]
  - Pain in extremity [Not Recovered/Not Resolved]
  - Product use in unapproved indication [Unknown]
  - Hereditary angioedema [Recovered/Resolved with Sequelae]
  - Mood altered [Not Recovered/Not Resolved]
  - Off label use [Unknown]
